FAERS Safety Report 19394967 (Version 1)
Quarter: 2021Q2

REPORT INFORMATION
  Report Type: Spontaneous
  Country: US (occurrence: US)
  Receive Date: 20210609
  Receipt Date: 20210609
  Transmission Date: 20210717
  Serious: Yes (Hospitalization)
  Sender: FDA-Public Use
  Company Number: US-LUPIN PHARMACEUTICALS INC.-2021-08834

PATIENT
  Age: 48 Year
  Sex: Female

DRUGS (3)
  1. TRIAMCINOLONE ACETONIDE. [Suspect]
     Active Substance: TRIAMCINOLONE ACETONIDE
     Indication: RASH PRURITIC
     Dosage: 80 MILLIGRAM (RECEIVED 2 DOSES)
     Route: 030
  2. SELINEXOR [Interacting]
     Active Substance: SELINEXOR
     Indication: PLASMA CELL MYELOMA
     Dosage: 80 MILLIGRAM, TWICE WEEKLY
     Route: 048
  3. DEXAMETHASONE. [Interacting]
     Active Substance: DEXAMETHASONE
     Indication: PLASMA CELL MYELOMA
     Dosage: 20 MILLIGRAM, TWICE WEEKLY
     Route: 048

REACTIONS (2)
  - Substance-induced psychotic disorder [Recovering/Resolving]
  - Drug interaction [Unknown]
